FAERS Safety Report 11135866 (Version 3)
Quarter: 2015Q2

REPORT INFORMATION
  Report Type: Spontaneous
  Country: CH (occurrence: CH)
  Receive Date: 20150526
  Receipt Date: 20150604
  Transmission Date: 20150821
  Serious: Yes (Death, Life-Threatening, Hospitalization, Other)
  Sender: FDA-Public Use
  Company Number: CH-ASTRAZENECA-2015SE50159

PATIENT
  Age: 29200 Day
  Sex: Male
  Weight: 103.5 kg

DRUGS (4)
  1. LANTUS [Concomitant]
     Active Substance: INSULIN GLARGINE
  2. GLICLAZIDE [Concomitant]
     Active Substance: GLICLAZIDE
  3. BYDUREON [Suspect]
     Active Substance: EXENATIDE
     Indication: TYPE 2 DIABETES MELLITUS
     Route: 058
     Dates: start: 20150429, end: 20150501
  4. METFORMIN [Concomitant]
     Active Substance: METFORMIN HYDROCHLORIDE

REACTIONS (5)
  - Malaise [Unknown]
  - Headache [Unknown]
  - Endocarditis [Unknown]
  - Septic shock [Fatal]
  - Cerebrovascular accident [Unknown]

NARRATIVE: CASE EVENT DATE: 20150429
